FAERS Safety Report 14166058 (Version 1)
Quarter: 2017Q4

REPORT INFORMATION
  Report Type: Spontaneous
  Country: US (occurrence: US)
  Receive Date: 20171106
  Receipt Date: 20171106
  Transmission Date: 20180321
  Serious: Yes (Death)
  Sender: FDA-Public Use
  Company Number: None

PATIENT
  Age: 67 Year
  Sex: Male
  Weight: 69.75 kg

DRUGS (12)
  1. DIPHENHYDRAMINE. [Concomitant]
     Active Substance: DIPHENHYDRAMINE
  2. VERAPAMIL [Concomitant]
     Active Substance: VERAPAMIL HYDROCHLORIDE
  3. CARBOPLATIN. [Suspect]
     Active Substance: CARBOPLATIN
     Indication: ORAL NEOPLASM BENIGN
     Dosage: ?          OTHER FREQUENCY:EVERY 3 WEEKS;?
     Route: 017
     Dates: start: 20170901, end: 20171106
  4. NEUPOGEN [Concomitant]
     Active Substance: FILGRASTIM
  5. OXYCODONE [Concomitant]
     Active Substance: OXYCODONE
  6. LIDOCAINE VISCOUS [Concomitant]
     Active Substance: LIDOCAINE HYDROCHLORIDE
  7. PACLITAXEL. [Suspect]
     Active Substance: PACLITAXEL
     Indication: ORAL NEOPLASM BENIGN
     Dosage: ?          OTHER FREQUENCY:EVERY 3 WEEKS;?
     Route: 042
     Dates: start: 20170901, end: 20171106
  8. DEXAMETHASONE. [Concomitant]
     Active Substance: DEXAMETHASONE
  9. FAMOTIDINE. [Concomitant]
     Active Substance: FAMOTIDINE
  10. XANAX [Concomitant]
     Active Substance: ALPRAZOLAM
  11. ONDANSETRON [Concomitant]
     Active Substance: ONDANSETRON
  12. LANSOPRAZOLE. [Concomitant]
     Active Substance: LANSOPRAZOLE

REACTIONS (1)
  - Disease progression [None]
